FAERS Safety Report 17607545 (Version 3)
Quarter: 2020Q3

REPORT INFORMATION
  Report Type: Spontaneous
  Country: US (occurrence: US)
  Receive Date: 20200401
  Receipt Date: 20200902
  Transmission Date: 20201102
  Serious: Yes (Disabling, Other)
  Sender: FDA-Public Use
  Company Number: US-009507513-2003USA011098

PATIENT
  Age: 64 Year
  Sex: Female
  Weight: 61.69 kg

DRUGS (8)
  1. INLYTA [Suspect]
     Active Substance: AXITINIB
     Indication: RENAL CANCER
     Dosage: 1 MILLIGRAM, QD
     Dates: start: 20200718
  2. INLYTA [Suspect]
     Active Substance: AXITINIB
     Dosage: 3 MILLIGRAM, QD
     Route: 048
     Dates: start: 202003, end: 2020
  3. INLYTA [Suspect]
     Active Substance: AXITINIB
     Dosage: 1 MILLIGRAM, QD
     Route: 048
     Dates: start: 202001, end: 2020
  4. INLYTA [Suspect]
     Active Substance: AXITINIB
     Dosage: 2 MILLIGRAM, BID
     Route: 048
     Dates: start: 202004, end: 20200422
  5. KEYTRUDA [Suspect]
     Active Substance: PEMBROLIZUMAB
     Indication: NEOPLASM MALIGNANT
     Dosage: UNK
     Dates: start: 202001, end: 20200422
  6. KEYTRUDA [Suspect]
     Active Substance: PEMBROLIZUMAB
     Dosage: UNK
     Dates: start: 20200708
  7. INLYTA [Suspect]
     Active Substance: AXITINIB
     Dosage: 2 MILLIGRAM, QD
     Route: 048
     Dates: start: 202002, end: 2020
  8. KEYTRUDA [Suspect]
     Active Substance: PEMBROLIZUMAB
     Dosage: SIXTH OR SEVENTH
     Dates: start: 2020, end: 20200731

REACTIONS (16)
  - Myalgia [Not Recovered/Not Resolved]
  - Pyrexia [Recovered/Resolved]
  - Malabsorption [Unknown]
  - Weight decreased [Not Recovered/Not Resolved]
  - Fatigue [Unknown]
  - Product dose omission issue [Unknown]
  - Arthralgia [Unknown]
  - Asthenia [Unknown]
  - Feeling cold [Not Recovered/Not Resolved]
  - Ill-defined disorder [Unknown]
  - Circumstance or information capable of leading to medication error [Unknown]
  - Gastritis [Unknown]
  - Dizziness [Unknown]
  - Malignant neoplasm progression [Unknown]
  - Muscular weakness [Not Recovered/Not Resolved]
  - Drug ineffective [Unknown]

NARRATIVE: CASE EVENT DATE: 2020
